FAERS Safety Report 5015040-1 (Version None)
Quarter: 2006Q2

REPORT INFORMATION
  Report Type: 
  Country: None (occurrence: None)
  Receive Date: 20060530
  Receipt Date: 20060512
  Transmission Date: 20061013
  Serious: Yes (Disabling)
  Sender: FDA-Public Use
  Company Number: 23100284

PATIENT
  Age: 75 Year
  Sex: Female

DRUGS (2)
  1. NOVASTAN [Suspect]
     Indication: CEREBRAL INFARCTION
     Dosage: 60 MG DAILY IV
     Route: 042
     Dates: start: 20060416, end: 20060417
  2. EDARAVONE [Concomitant]

REACTIONS (3)
  - APHASIA [None]
  - HAEMORRHAGIC INFARCTION [None]
  - HEMIPLEGIA [None]
